FAERS Safety Report 7319614-4 (Version None)
Quarter: 2011Q1

REPORT INFORMATION
  Report Type: 
  Country: None (occurrence: None)
  Receive Date: 20110228
  Receipt Date: 20100614
  Transmission Date: 20110831
  Serious: No
  Sender: FDA-Public Use
  Company Number: A0865020A

PATIENT
  Age: 23 Year
  Sex: Female

DRUGS (1)
  1. LAMICTAL [Suspect]
     Dosage: 300MG PER DAY

REACTIONS (4)
  - RASH MACULAR [None]
  - RASH PRURITIC [None]
  - HOT FLUSH [None]
  - RASH ERYTHEMATOUS [None]
